FAERS Safety Report 25816204 (Version 2)
Quarter: 2025Q3

REPORT INFORMATION
  Report Type: Report from Study
  Country: US (occurrence: US)
  Receive Date: 20250918
  Receipt Date: 20250921
  Transmission Date: 20251021
  Serious: Yes (Other)
  Sender: JOHNSON AND JOHNSON
  Company Number: US-JNJFOC-20250913791

PATIENT
  Age: 69 Year
  Sex: Male

DRUGS (1)
  1. CILTACABTAGENE AUTOLEUCEL [Suspect]
     Active Substance: CILTACABTAGENE AUTOLEUCEL
     Indication: Plasma cell myeloma
     Route: 065

REACTIONS (1)
  - Malignant genitourinary tract neoplasm [Unknown]
